FAERS Safety Report 8134625-7 (Version None)
Quarter: 2012Q1

REPORT INFORMATION
  Report Type: 
  Country: None (occurrence: None)
  Receive Date: 20120209
  Receipt Date: 20120124
  Transmission Date: 20120608
  Serious: Yes (Hospitalization)
  Sender: FDA-Public Use
  Company Number: 2012CP000019

PATIENT
  Age: 83 Year
  Sex: Female

DRUGS (3)
  1. ACETAMINOPHEN [Suspect]
     Dosage: 500 MG, PO
     Route: 048
     Dates: start: 20111031, end: 20111101
  2. ACETAMINOPHEN AND CODEINE PHOSPHATE [Suspect]
     Indication: PAIN
     Dosage: 1 DOSAGE FORM; 4/1 DAY, PO
     Route: 048
     Dates: start: 20111101, end: 20111103
  3. ACETAMINOPHEN [Suspect]
     Dosage: 1 DOSAGE FORM; 1/8 HOUR, IV
     Route: 042
     Dates: start: 20111030, end: 20111031

REACTIONS (6)
  - BILIRUBIN CONJUGATED INCREASED [None]
  - GAMMA-GLUTAMYLTRANSFERASE INCREASED [None]
  - BLOOD ALKALINE PHOSPHATASE INCREASED [None]
  - ALANINE AMINOTRANSFERASE INCREASED [None]
  - ASPARTATE AMINOTRANSFERASE INCREASED [None]
  - C-REACTIVE PROTEIN INCREASED [None]
